FAERS Safety Report 20454730 (Version 2)
Quarter: 2022Q1

REPORT INFORMATION
  Report Type: Spontaneous
  Country: US (occurrence: US)
  Receive Date: 20220210
  Receipt Date: 20220217
  Transmission Date: 20220423
  Serious: No
  Sender: FDA-Public Use
  Company Number: US-ALKERMES INC.-ALK-2022-000629

PATIENT
  Sex: Male

DRUGS (2)
  1. ARISTADA [Suspect]
     Active Substance: ARIPIPRAZOLE LAUROXIL
     Indication: Schizophrenia
     Dosage: 1064 MILLIGRAM, Q6WK
     Route: 030
  2. ARISTADA [Suspect]
     Active Substance: ARIPIPRAZOLE LAUROXIL
     Dosage: 1064 MILLIGRAM, Q8WK
     Route: 030

REACTIONS (9)
  - Hallucination, auditory [Unknown]
  - Paranoia [Unknown]
  - Delusion [Unknown]
  - Affective disorder [Unknown]
  - Loss of personal independence in daily activities [Unknown]
  - Drug ineffective [Recovered/Resolved]
  - Therapeutic response shortened [Recovered/Resolved]
  - Off label use [Recovered/Resolved]
  - Aggression [Unknown]
